FAERS Safety Report 4314469-4 (Version None)
Quarter: 2004Q1

REPORT INFORMATION
  Report Type: 
  Country: None (occurrence: None)
  Receive Date: 20040308
  Receipt Date: 20040303
  Transmission Date: 20041129
  Serious: Yes (Hospitalization)
  Sender: FDA-Public Use
  Company Number: 2004-02-0297

PATIENT
  Age: 62 Year
  Sex: Male
  Weight: 70 kg

DRUGS (3)
  1. CELESTAMINE TAB [Suspect]
     Indication: RHINITIS ALLERGIC
     Dosage: 2 TABLETS; ORAL
     Route: 048
     Dates: start: 20030410, end: 20031031
  2. CLARITIN [Suspect]
     Indication: RHINITIS ALLERGIC
     Dosage: 10 MG; ORAL
     Route: 048
     Dates: start: 20030410, end: 20031031
  3. DIAZEPAM [Concomitant]

REACTIONS (3)
  - ACUTE STRESS DISORDER [None]
  - MENTAL DISORDER [None]
  - SUDDEN HEARING LOSS [None]
